FAERS Safety Report 9144973 (Version 1)
Quarter: 2013Q1

REPORT INFORMATION
  Report Type: Spontaneous
  Country: GB (occurrence: GB)
  Receive Date: 20130307
  Receipt Date: 20130307
  Transmission Date: 20140127
  Serious: Yes (Hospitalization, Other)
  Sender: FDA-Public Use
  Company Number: GB-009507513-1303GBR001415

PATIENT
  Age: 68 Year
  Sex: Female
  Weight: 63 kg

DRUGS (5)
  1. MARVELON [Suspect]
     Indication: MENORRHAGIA
     Route: 048
  2. MODURETIC [Suspect]
     Indication: HYPERTENSION
     Route: 048
  3. DUPHASTON [Suspect]
     Indication: MENORRHAGIA
  4. NORETHINDRONE [Suspect]
     Indication: MENORRHAGIA
  5. CANESTEN [Concomitant]
     Dosage: UNK

REACTIONS (6)
  - Activities of daily living impaired [Not Recovered/Not Resolved]
  - Psychomotor hyperactivity [Not Recovered/Not Resolved]
  - Insomnia [Not Recovered/Not Resolved]
  - Sepsis [Not Recovered/Not Resolved]
  - Gait disturbance [Not Recovered/Not Resolved]
  - Weight decreased [Not Recovered/Not Resolved]
